FAERS Safety Report 16084709 (Version 1)
Quarter: 2019Q1

REPORT INFORMATION
  Report Type: Spontaneous
  Country: DE (occurrence: DE)
  Receive Date: 20190318
  Receipt Date: 20190318
  Transmission Date: 20190418
  Serious: Yes (Other)
  Sender: FDA-Public Use
  Company Number: DE-PFIZER INC-2019111122

PATIENT
  Age: 73 Year

DRUGS (2)
  1. SUNITINIB MALATE. [Suspect]
     Active Substance: SUNITINIB MALATE
     Dosage: 50 MG, 2/1 SCHEME
  2. SUNITINIB MALATE. [Suspect]
     Active Substance: SUNITINIB MALATE
     Dosage: 50 MG, 4/2 SCHEME

REACTIONS (15)
  - Large intestinal haemorrhage [Unknown]
  - Diarrhoea [Unknown]
  - Hair colour changes [Unknown]
  - Duodenal ulcer [Unknown]
  - General physical health deterioration [Unknown]
  - Anaemia [Unknown]
  - Gastrointestinal angiodysplasia [Unknown]
  - Decreased appetite [Unknown]
  - Palmar-plantar erythrodysaesthesia syndrome [Unknown]
  - Asthenia [Unknown]
  - Small intestinal haemorrhage [Unknown]
  - Blood pressure fluctuation [Unknown]
  - Yellow skin [Unknown]
  - Fatigue [Unknown]
  - Hypothyroidism [Unknown]
